FAERS Safety Report 8865106 (Version 1)
Quarter: 2012Q4

REPORT INFORMATION
  Report Type: 
  Country: US (occurrence: US)
  Receive Date: 20121024
  Receipt Date: 20121024
  Transmission Date: 20130627
  Serious: No
  Sender: FDA-Public Use
  Company Number: US-AMGEN-USASP2012001177

PATIENT
  Age: 45 Year
  Sex: Female
  Weight: 50.79 kg

DRUGS (11)
  1. ENBREL [Suspect]
     Indication: PRODUCT USED FOR UNKNOWN INDICATION
     Dosage: 50 mg, qwk
     Route: 058
  2. PLAQUENIL [Concomitant]
     Dosage: 200 mg, UNK
  3. METHOTREXATE [Concomitant]
     Dosage: 2.5 mg, UNK
  4. ASPIRIN [Concomitant]
     Dosage: 81 mg, UNK
  5. FOLIC ACID [Concomitant]
     Dosage: 1 mg, UNK
  6. ZANTAC [Concomitant]
     Dosage: 75 UNK, UNK
  7. CALCIUM [Concomitant]
     Dosage: 600 DF, UNK
  8. MULTIVITAMIN [Concomitant]
     Dosage: UNK
  9. IRON [Concomitant]
     Dosage: 325 mg, UNK
  10. FLAXSEED OIL [Concomitant]
  11. VITAMIN D3 [Concomitant]
     Dosage: UNK

REACTIONS (1)
  - Respiratory tract infection [Recovered/Resolved]
